FAERS Safety Report 8239076-2 (Version None)
Quarter: 2012Q1

REPORT INFORMATION
  Report Type: 
  Country: None (occurrence: None)
  Receive Date: 20120327
  Receipt Date: 20120319
  Transmission Date: 20120608
  Serious: Yes (Other)
  Sender: FDA-Public Use
  Company Number: US-ASTRAZENECA-2011SE74697

PATIENT
  Age: 52 Year
  Sex: Male
  Weight: 59 kg

DRUGS (14)
  1. SEROQUEL [Suspect]
     Indication: BIPOLAR I DISORDER
     Route: 048
     Dates: start: 20080101
  2. SEROQUEL [Suspect]
     Route: 048
  3. IMODIUM [Concomitant]
     Dosage: DAILY
  4. VITAMIN B-12 [Concomitant]
  5. LEVOFLOXACIN [Concomitant]
     Indication: PNEUMONIA
  6. IRON [Concomitant]
  7. ADRENADOOSC [Concomitant]
     Indication: ADRENAL DISORDER
  8. TRAMADOL HCL [Concomitant]
  9. CLONAZEPAM [Concomitant]
  10. OPIUM TINCTURE [Concomitant]
     Indication: PNEUMONIA
     Dosage: 25-30 DROPS, THREE TIMES A DAY
  11. FLUDROCORTISONE ACETATE [Concomitant]
     Dosage: TWO TIMES A DAY
  12. HYDROCORTISONE [Concomitant]
     Dosage: 10 G TWO TABS IN THE MORNING AND ONE TAB IN THE EVENING
  13. FIBERCON [Concomitant]
  14. ASCORBIC ACID [Concomitant]

REACTIONS (7)
  - MANIA [None]
  - LUNG INFECTION [None]
  - ADRENAL INSUFFICIENCY [None]
  - COLON CANCER [None]
  - LUNG NEOPLASM MALIGNANT [None]
  - PNEUMONIA [None]
  - DRUG DOSE OMISSION [None]
